FAERS Safety Report 7918507-9 (Version None)
Quarter: 2011Q4

REPORT INFORMATION
  Report Type: 
  Country: None (occurrence: None)
  Receive Date: 20111116
  Receipt Date: 20111026
  Transmission Date: 20120403
  Serious: No
  Sender: FDA-Public Use
  Company Number: US-COVIDIEN/TYCO HEALTHCARE/MALLINCKRODT-T201102319

PATIENT
  Age: 32 Year
  Sex: Female

DRUGS (1)
  1. FENTANYL-100 [Suspect]
     Indication: KNEE OPERATION
     Dosage: 25 UG/HR, UNK
     Route: 062
     Dates: start: 20111024

REACTIONS (1)
  - APPLICATION SITE PAIN [None]
